FAERS Safety Report 4334055-X (Version None)
Quarter: 2004Q2

REPORT INFORMATION
  Report Type: 
  Country: None (occurrence: None)
  Receive Date: 20040402
  Receipt Date: 20040309
  Transmission Date: 20050107
  Serious: Yes (Hospitalization)
  Sender: FDA-Public Use
  Company Number: FR-JNJFOC-20040301765

PATIENT
  Age: 2 Month
  Sex: Female

DRUGS (1)
  1. MICONAZOLE [Suspect]
     Indication: ORAL CANDIDIASIS
     Dosage: 1 DOSE(S), 3 IN 1 TOTAL, ORAL
     Route: 048
     Dates: start: 20040301, end: 20040301

REACTIONS (3)
  - MEDICAL OBSERVATION ABNORMAL [None]
  - MEDICATION ERROR [None]
  - OVERDOSE [None]
